FAERS Safety Report 25608266 (Version 3)
Quarter: 2025Q3

REPORT INFORMATION
  Report Type: Spontaneous
  Country: JP (occurrence: JP)
  Receive Date: 20250725
  Receipt Date: 20250815
  Transmission Date: 20251020
  Serious: Yes (Other)
  Sender: JAZZ
  Company Number: JP-JAZZ PHARMACEUTICALS-2025-JP-005991

PATIENT
  Age: 74 Year
  Sex: Female

DRUGS (13)
  1. VYXEOS [Suspect]
     Active Substance: CYTARABINE\DAUNORUBICIN
     Indication: Acute myeloid leukaemia
  2. VYXEOS [Suspect]
     Active Substance: CYTARABINE\DAUNORUBICIN
  3. VYXEOS [Suspect]
     Active Substance: CYTARABINE\DAUNORUBICIN
  4. VYXEOS [Suspect]
     Active Substance: CYTARABINE\DAUNORUBICIN
  5. VYXEOS [Suspect]
     Active Substance: CYTARABINE\DAUNORUBICIN
  6. VYXEOS [Suspect]
     Active Substance: CYTARABINE\DAUNORUBICIN
  7. VYXEOS [Suspect]
     Active Substance: CYTARABINE\DAUNORUBICIN
  8. AZACITIDINE [Suspect]
     Active Substance: AZACITIDINE
     Indication: Acute myeloid leukaemia
  9. AZACITIDINE [Suspect]
     Active Substance: AZACITIDINE
  10. CYTARABINE [Suspect]
     Active Substance: CYTARABINE
     Indication: Acute myeloid leukaemia
  11. VENCLEXTA [Concomitant]
     Active Substance: VENETOCLAX
     Indication: Acute myeloid leukaemia
  12. VENCLEXTA [Concomitant]
     Active Substance: VENETOCLAX
  13. ACLARUBICIN HYDROCHLORIDE [Concomitant]
     Active Substance: ACLARUBICIN HYDROCHLORIDE
     Indication: Acute myeloid leukaemia

REACTIONS (8)
  - Acute myeloid leukaemia recurrent [Unknown]
  - Febrile neutropenia [Recovered/Resolved]
  - Acute febrile neutrophilic dermatosis [Unknown]
  - Cytopenia [Unknown]
  - Blood pressure increased [Unknown]
  - Liver disorder [Unknown]
  - Drug eruption [Unknown]
  - Therapeutic product effect incomplete [Unknown]

NARRATIVE: CASE EVENT DATE: 20250411
